FAERS Safety Report 8561204-X (Version None)
Quarter: 2012Q3

REPORT INFORMATION
  Report Type: 
  Country: None (occurrence: None)
  Receive Date: 20120802
  Receipt Date: 20120622
  Transmission Date: 20120928
  Serious: No
  Sender: FDA-Public Use
  Company Number: US-BRISTOL-MYERS SQUIBB COMPANY-16706798

PATIENT
  Age: 54 Year
  Sex: Female
  Weight: 62 kg

DRUGS (5)
  1. IBUPROFEN (ADVIL) [Concomitant]
  2. AMBIEN [Concomitant]
  3. ASPIRIN [Concomitant]
  4. ESTRACE [Suspect]
     Dates: start: 20110801, end: 20110801
  5. NEXIUM [Concomitant]

REACTIONS (1)
  - ADVERSE EVENT [None]
